FAERS Safety Report 25172416 (Version 3)
Quarter: 2025Q2

REPORT INFORMATION
  Report Type: Spontaneous
  Country: US (occurrence: US)
  Receive Date: 20250408
  Receipt Date: 20250521
  Transmission Date: 20250717
  Serious: No
  Sender: LUPIN
  Company Number: US-LUPIN PHARMACEUTICALS INC.-2025-02465

PATIENT

DRUGS (3)
  1. RIFAMPIN [Suspect]
     Active Substance: RIFAMPIN
     Indication: Tuberculosis
     Dosage: 2 DOSAGE FORM, QD, IN THE MORNING
     Route: 065
  2. RIFAMPIN [Suspect]
     Active Substance: RIFAMPIN
     Dosage: 2 DOSAGE FORM, QD, IN THE MORNING
     Route: 065
  3. FINGOLIMOD [Concomitant]
     Active Substance: FINGOLIMOD
     Indication: Multiple sclerosis
     Route: 065

REACTIONS (4)
  - Pyrexia [Recovered/Resolved]
  - Product size issue [Unknown]
  - Product colour issue [Unknown]
  - Product quality issue [Unknown]
